FAERS Safety Report 6124046-0 (Version None)
Quarter: 2009Q1

REPORT INFORMATION
  Report Type: 
  Country: None (occurrence: None)
  Receive Date: 20090319
  Receipt Date: 20090310
  Transmission Date: 20090719
  Serious: Yes (Other)
  Sender: FDA-Public Use
  Company Number: PHHY2009SE06961

PATIENT
  Sex: Female

DRUGS (12)
  1. EXELON [Suspect]
     Indication: DEMENTIA
     Dosage: 4.6 MG, QD
     Route: 062
     Dates: start: 20080415, end: 20080715
  2. EXELON [Suspect]
     Indication: OSTEOARTHRITIS
     Dosage: 9.5 MG, QD
     Route: 062
     Dates: start: 20080716
  3. MIRTAZAPINE [Concomitant]
     Dosage: 30 MG, UNK
  4. TRIOBE [Concomitant]
     Dosage: 0,5 MG/0,8 MG/3 MG
  5. SELOKEN ZOC [Concomitant]
     Dosage: 25 MG
  6. ARCOXIA [Concomitant]
     Dosage: 95 MG
  7. ALLOPURINOL [Concomitant]
     Dosage: 100 MG
  8. ZOLPIDEM [Concomitant]
     Dosage: 5 MG
  9. AQUANIL [Concomitant]
     Dosage: 2,5 MG/ML
  10. XALATAN [Concomitant]
  11. FORLAX [Concomitant]
     Dosage: 10 G
  12. VAGIFEM [Concomitant]
     Dosage: 5 MG AND 10 MG

REACTIONS (1)
  - TARDIVE DYSKINESIA [None]
